FAERS Safety Report 20381951 (Version 1)
Quarter: 2022Q1

REPORT INFORMATION
  Report Type: Report from Study
  Country: US (occurrence: US)
  Receive Date: 20220127
  Receipt Date: 20220127
  Transmission Date: 20220423
  Serious: No
  Sender: FDA-Public Use
  Company Number: US-Ipsen Biopharmaceuticals, Inc.-2022-01114

PATIENT
  Age: 57 Year
  Sex: Female

DRUGS (1)
  1. SOMATULINE DEPOT [Suspect]
     Active Substance: LANREOTIDE ACETATE
     Indication: Acromegaly
     Dosage: 90MG/0.3 ML
     Route: 058

REACTIONS (4)
  - Injection site pain [Unknown]
  - Injection site mass [Recovering/Resolving]
  - Blood cholesterol increased [Recovering/Resolving]
  - Low density lipoprotein increased [Recovering/Resolving]

NARRATIVE: CASE EVENT DATE: 20110101
